FAERS Safety Report 22787795 (Version 6)
Quarter: 2024Q3

REPORT INFORMATION
  Report Type: Report from Study
  Country: US (occurrence: US)
  Receive Date: 20230804
  Receipt Date: 20240808
  Transmission Date: 20241017
  Serious: No
  Sender: NOVARTIS
  Company Number: US-002147023-NVSC2023US170211

PATIENT
  Age: 57 Year
  Sex: Female
  Weight: 131.54 kg

DRUGS (4)
  1. COSENTYX [Suspect]
     Active Substance: SECUKINUMAB
     Indication: Spondyloarthropathy
     Dosage: 150 MG, QMO
     Route: 058
     Dates: start: 20230701
  2. COSENTYX [Suspect]
     Active Substance: SECUKINUMAB
     Dosage: 150 MG, QMO
     Route: 058
  3. SULFASALAZINE [Concomitant]
     Active Substance: SULFASALAZINE
     Indication: Product used for unknown indication
     Dosage: 1000 MG, BID (Q AM AND Q  PM))
     Route: 065
  4. TRAMADOL [Concomitant]
     Active Substance: TRAMADOL\TRAMADOL HYDROCHLORIDE
     Indication: Product used for unknown indication
     Route: 065

REACTIONS (6)
  - Incorrect dose administered [Not Recovered/Not Resolved]
  - Device defective [Not Recovered/Not Resolved]
  - Musculoskeletal stiffness [Unknown]
  - Back pain [Unknown]
  - Arthralgia [Unknown]
  - Gait disturbance [Unknown]

NARRATIVE: CASE EVENT DATE: 20230802
